FAERS Safety Report 20710005 (Version 1)
Quarter: 2022Q2

REPORT INFORMATION
  Report Type: Spontaneous
  Country: CN (occurrence: CN)
  Receive Date: 20220414
  Receipt Date: 20220414
  Transmission Date: 20220720
  Serious: Yes (Other)
  Sender: FDA-Public Use
  Company Number: CN-BRACCO-2022CN01397

PATIENT
  Age: 40 Year
  Sex: Male

DRUGS (1)
  1. MULTIHANCE [Suspect]
     Active Substance: GADOBENATE DIMEGLUMINE
     Indication: Magnetic resonance imaging hepatobiliary
     Dosage: 12 ML, SINGLE
     Route: 042
     Dates: start: 20220411, end: 20220411

REACTIONS (3)
  - Palpitations [Recovering/Resolving]
  - Blood pressure decreased [Recovering/Resolving]
  - Shock [Recovering/Resolving]

NARRATIVE: CASE EVENT DATE: 20220411
